FAERS Safety Report 6288769-5 (Version None)
Quarter: 2009Q3

REPORT INFORMATION
  Report Type: 
  Country: None (occurrence: None)
  Receive Date: 20090729
  Receipt Date: 20090721
  Transmission Date: 20100115
  Serious: Yes (Hospitalization)
  Sender: FDA-Public Use
  Company Number: PHHO2009NL09164

PATIENT
  Sex: Female
  Weight: 76 kg

DRUGS (2)
  1. CERTICAN [Suspect]
     Indication: NEPHROPATHY
     Dosage: OPEN LABEL
     Route: 048
     Dates: start: 20080523, end: 20090622
  2. PREDNISON [Concomitant]
     Indication: NEPHROPATHY
     Dosage: 10 MG, QD
     Route: 048
     Dates: start: 20080523, end: 20090622

REACTIONS (2)
  - TRANSPLANT REJECTION [None]
  - VIRAL INFECTION [None]
